FAERS Safety Report 12115402 (Version 1)
Quarter: 2016Q1

REPORT INFORMATION
  Report Type: Spontaneous
  Country: US (occurrence: US)
  Receive Date: 20160225
  Receipt Date: 20160225
  Transmission Date: 20160526
  Serious: Yes (Other)
  Sender: FDA-Public Use
  Company Number: US-PHARSAFER ASSOCIATES LTD-RAP-0192-2014

PATIENT
  Age: 5 Year
  Sex: Female
  Weight: 13.2 kg

DRUGS (10)
  1. PROCYSBI DELAYED-RELEASE [Suspect]
     Active Substance: CYSTEAMINE BITARTRATE
     Indication: CYSTINOSIS
     Dosage: 375 MG, BID
     Route: 048
     Dates: start: 20140509
  2. POTASSIUM CHLORIDE. [Concomitant]
     Active Substance: POTASSIUM CHLORIDE
     Indication: PRODUCT USED FOR UNKNOWN INDICATION
     Dosage: 6 ML, BID
     Route: 065
     Dates: start: 2012
  3. CYTRA K [Concomitant]
     Indication: PRODUCT USED FOR UNKNOWN INDICATION
     Dosage: 5 ML, TID
     Route: 065
     Dates: start: 2012
  4. CYTRA K [Concomitant]
     Route: 065
  5. LEVOCARNITINE. [Concomitant]
     Active Substance: LEVOCARNITINE
     Indication: PRODUCT USED FOR UNKNOWN INDICATION
     Dosage: 6 ML, BID
     Route: 065
  6. CETIRIZINE [Concomitant]
     Active Substance: CETIRIZINE HYDROCHLORIDE
     Indication: PRODUCT USED FOR UNKNOWN INDICATION
     Dosage: 2.5 ML, QD
     Route: 065
     Dates: start: 2014
  7. FERROUS SULFATE [Concomitant]
     Active Substance: FERROUS SULFATE\FERROUS SULFATE, DRIED
     Indication: PRODUCT USED FOR UNKNOWN INDICATION
     Dosage: UNK
     Route: 065
  8. NUTROPIN NUSPIN [Concomitant]
     Indication: PRODUCT USED FOR UNKNOWN INDICATION
     Dosage: 5 MG, QD
     Route: 065
     Dates: start: 2013
  9. CYSTARAN [Concomitant]
     Active Substance: CYSTEAMINE HYDROCHLORIDE
     Indication: PRODUCT USED FOR UNKNOWN INDICATION
     Dosage: UNK
     Route: 065
  10. OMEPRAZOLE. [Concomitant]
     Active Substance: OMEPRAZOLE
     Indication: PRODUCT USED FOR UNKNOWN INDICATION
     Dosage: 4 ML, BID
     Route: 065
     Dates: start: 2012

REACTIONS (7)
  - Headache [Recovering/Resolving]
  - Abdominal pain upper [Recovering/Resolving]
  - Choking [Recovering/Resolving]
  - Pruritus [Recovering/Resolving]
  - Vomiting [Recovering/Resolving]
  - Retching [Recovering/Resolving]
  - Nausea [Recovering/Resolving]

NARRATIVE: CASE EVENT DATE: 201405
